FAERS Safety Report 6262931-X (Version None)
Quarter: 2009Q3

REPORT INFORMATION
  Report Type: 
  Country: None (occurrence: None)
  Receive Date: 20090709
  Receipt Date: 20090707
  Transmission Date: 20100115
  Serious: Yes (Life-Threatening, Hospitalization)
  Sender: FDA-Public Use
  Company Number: US-GILEAD-2009-0022804

PATIENT
  Age: 63 Year
  Sex: Male
  Weight: 55.842 kg

DRUGS (8)
  1. VIREAD [Suspect]
     Route: 048
     Dates: start: 20030801, end: 20090501
  2. VIDEX [Concomitant]
     Route: 048
     Dates: start: 20011101, end: 20090501
  3. SUSTIVA [Concomitant]
     Route: 048
     Dates: start: 20011101, end: 20090501
  4. TRICOR [Concomitant]
     Indication: HYPERLIPIDAEMIA
  5. LEVOTHYROXINE SODIUM [Concomitant]
  6. FLEXERIL [Concomitant]
     Indication: BACK PAIN
  7. VICODIN [Concomitant]
     Indication: BACK PAIN
  8. ASPIRIN [Concomitant]
     Indication: BACK PAIN

REACTIONS (2)
  - RENAL FAILURE [None]
  - RENAL TUBULAR ACIDOSIS [None]
